FAERS Safety Report 22640485 (Version 1)
Quarter: 2023Q2

REPORT INFORMATION
  Report Type: Spontaneous
  Country: US (occurrence: US)
  Receive Date: 20230626
  Receipt Date: 20230626
  Transmission Date: 20230721
  Serious: No
  Sender: FDA-Public Use
  Company Number: US-TEVA-2023-US-2897221

PATIENT
  Age: 17 Year
  Sex: Male
  Weight: 35.7 kg

DRUGS (8)
  1. CLARAVIS [Suspect]
     Active Substance: ISOTRETINOIN
     Indication: Acne
     Dosage: 80 MILLIGRAM DAILY; STRENGTH: 40 MG
     Dates: start: 20230131, end: 20230228
  2. ISOTRETINOIN [Suspect]
     Active Substance: ISOTRETINOIN
     Indication: Acne
     Route: 048
     Dates: start: 20220920, end: 20221023
  3. ISOTRETINOIN [Suspect]
     Active Substance: ISOTRETINOIN
     Dosage: 30 MG, 1X/DAY TAKEN IN CONJUNCTION WITH 80 MG, 1X/DAY
     Route: 065
     Dates: start: 20230131, end: 20230228
  4. MYORISAN [Suspect]
     Active Substance: ISOTRETINOIN
     Indication: Acne
     Dosage: STRENGTH: 30 MG
     Route: 048
     Dates: start: 20221024, end: 20221128
  5. MYORISAN [Suspect]
     Active Substance: ISOTRETINOIN
     Dosage: 30 MG, 1X/DAY TAKEN IN CONJUNCTION WITH 80 MG, 1X/DAY
     Route: 065
     Dates: start: 20221230, end: 20230130
  6. MYORISAN [Suspect]
     Active Substance: ISOTRETINOIN
     Dosage: 30 MG, 1X/DAY TAKEN IN CONJUNCTION WITH 80 MG, 1X/DAY
     Route: 048
     Dates: start: 20230301, end: 20230509
  7. MYORISAN [Suspect]
     Active Substance: ISOTRETINOIN
     Dosage: 80 MILLIGRAM DAILY; 80 MG, 1X/DAY TAKEN IN CONJUNCTION WITH 30 MG, 1X/DAY
     Route: 048
     Dates: start: 20221230, end: 20230130
  8. MYORISAN [Suspect]
     Active Substance: ISOTRETINOIN
     Dosage: 80 MILLIGRAM DAILY; 80 MG, 1X/DAY TAKEN IN CONJUNCTION WITH 30 MG 1X/DAY
     Route: 048
     Dates: start: 20230301, end: 20230509

REACTIONS (12)
  - Dry eye [Unknown]
  - Eye irritation [Unknown]
  - Appetite disorder [Unknown]
  - Chapped lips [Unknown]
  - Alopecia [Unknown]
  - Lip dry [Unknown]
  - Nasal dryness [Unknown]
  - Nausea [Unknown]
  - Headache [Unknown]
  - Dry skin [Unknown]
  - Sunburn [Unknown]
  - Epistaxis [Unknown]
